FAERS Safety Report 23406549 (Version 2)
Quarter: 2024Q1

REPORT INFORMATION
  Report Type: Report from Study
  Country: US (occurrence: US)
  Receive Date: 20240116
  Receipt Date: 20240328
  Transmission Date: 20240410
  Serious: No
  Sender: FDA-Public Use
  Company Number: US-INCYTE CORPORATION-2023IN011083

PATIENT

DRUGS (1)
  1. JAKAFI [Suspect]
     Active Substance: RUXOLITINIB
     Indication: Thrombocytosis
     Dosage: 25 MILLIGRAM, BID
     Route: 048

REACTIONS (4)
  - Headache [Unknown]
  - Platelet count decreased [Unknown]
  - Off label use [Unknown]
  - Prescribed overdose [Unknown]
